FAERS Safety Report 13546119 (Version 1)
Quarter: 2017Q2

REPORT INFORMATION
  Report Type: Spontaneous
  Country: US (occurrence: US)
  Receive Date: 20170514
  Receipt Date: 20170514
  Transmission Date: 20170830
  Serious: Yes (Disabling)
  Sender: FDA-Public Use
  Company Number: None

PATIENT
  Age: 49 Year
  Sex: Female
  Weight: 81 kg

DRUGS (8)
  1. CHLORPHRENAMINE MALEATE [Concomitant]
  2. VIIBRYD [Suspect]
     Active Substance: VILAZODONE HYDROCHLORIDE
     Indication: DEPRESSION
     Dosage: ?          QUANTITY:1 TABLET(S);?
     Route: 048
     Dates: start: 20170413, end: 20170501
  3. ALBUTEROL INHALER [Concomitant]
     Active Substance: ALBUTEROL
  4. VIIBRYD [Suspect]
     Active Substance: VILAZODONE HYDROCHLORIDE
     Indication: DEPRESSION
     Dosage: ?          QUANTITY:1 TABLET(S);?
     Route: 048
     Dates: start: 20170413, end: 20170501
  5. HYDROCORTISONE. [Concomitant]
     Active Substance: HYDROCORTISONE
  6. FLUDROCORTISONE [Concomitant]
     Active Substance: FLUDROCORTISONE
  7. SUDAFED [Concomitant]
     Active Substance: PSEUDOEPHEDRINE HYDROCHLORIDE
  8. IBUPROFEN. [Concomitant]
     Active Substance: IBUPROFEN

REACTIONS (11)
  - Dysstasia [None]
  - Joint swelling [None]
  - Peripheral swelling [None]
  - Pruritus [None]
  - Gait disturbance [None]
  - Breast swelling [None]
  - Dyspnoea [None]
  - Hypersensitivity [None]
  - Pain [None]
  - Chest discomfort [None]
  - Oedema [None]

NARRATIVE: CASE EVENT DATE: 20170420
